FAERS Safety Report 9450128 (Version 3)
Quarter: 2013Q4

REPORT INFORMATION
  Report Type: Report from Study
  Country: BR (occurrence: BR)
  Receive Date: 20130809
  Receipt Date: 20131003
  Transmission Date: 20140711
  Serious: Yes (Other)
  Sender: FDA-Public Use
  Company Number: BR-NOVOPROD-384731

PATIENT
  Age: 59 Year
  Sex: Female
  Weight: 65 kg

DRUGS (7)
  1. INSULIN DETEMIR FLEXPEN [Suspect]
     Indication: TYPE 2 DIABETES MELLITUS
     Dosage: 70 IU, QD (MORNING)
     Route: 058
     Dates: start: 2003
  2. INSULIN DETEMIR FLEXPEN [Suspect]
     Dosage: 76 IU, QD (38 IU MORNING AND 38 IU NIGHT)
     Route: 058
  3. NOVORAPID FLEXPEN [Suspect]
     Indication: TYPE 2 DIABETES MELLITUS
     Dosage: UNKNOWN
     Route: 065
     Dates: start: 20130717
  4. GALVUS MET [Concomitant]
     Indication: TYPE 2 DIABETES MELLITUS
     Dosage: UNK
     Route: 048
     Dates: start: 201305
  5. ATORVASTATIN [Concomitant]
     Indication: BLOOD CHOLESTEROL ABNORMAL
     Dosage: 1 TAB, UNK
     Route: 048
     Dates: start: 2010
  6. CIPROFIBRATE [Concomitant]
     Indication: BLOOD TRIGLYCERIDES ABNORMAL
     Dosage: 1 TAB, UNK
     Route: 048
  7. CYMBALTA [Concomitant]
     Indication: PAIN
     Dosage: 1 TAB, UNK
     Route: 048
     Dates: start: 2010

REACTIONS (5)
  - Treatment noncompliance [Unknown]
  - Diabetic neuropathy [Unknown]
  - Condition aggravated [Not Recovered/Not Resolved]
  - Injection site discomfort [Not Recovered/Not Resolved]
  - Injection site pain [Not Recovered/Not Resolved]
